FAERS Safety Report 17595010 (Version 2)
Quarter: 2020Q2

REPORT INFORMATION
  Report Type: Report from Study
  Country: US (occurrence: US)
  Receive Date: 20200328
  Receipt Date: 20200407
  Transmission Date: 20200713
  Serious: No
  Sender: FDA-Public Use
  Company Number: NVSC2020US082683

PATIENT
  Age: 68 Year
  Sex: Male

DRUGS (3)
  1. ENTRESTO [Suspect]
     Active Substance: SACUBITRIL\VALSARTAN
     Indication: CARDIAC FAILURE
     Dosage: 50 MG(24 MG SACUBITRIL/26 MG VALSARTAN), BID
     Route: 048
     Dates: start: 201910
  2. ENTRESTO [Suspect]
     Active Substance: SACUBITRIL\VALSARTAN
     Indication: CARDIAC FAILURE CHRONIC
     Dosage: 100 MG(49 MG SACUBITRIL/51 MG VALSARTAN),
     Route: 048
     Dates: start: 201912
  3. ENTRESTO [Suspect]
     Active Substance: SACUBITRIL\VALSARTAN
     Dosage: 50 MG(24 MG SACUBITRIL/26 MG VALSARTAN),
     Route: 048
     Dates: start: 20200319

REACTIONS (4)
  - Joint swelling [Unknown]
  - Dizziness [Unknown]
  - Limb discomfort [Unknown]
  - Hypotension [Unknown]

NARRATIVE: CASE EVENT DATE: 20200301
